FAERS Safety Report 13267163 (Version 2)
Quarter: 2017Q1

REPORT INFORMATION
  Report Type: Spontaneous
  Country: IT (occurrence: IT)
  Receive Date: 20170224
  Receipt Date: 20170314
  Transmission Date: 20170428
  Serious: Yes (Death, Other)
  Sender: FDA-Public Use
  Company Number: IT-BRISTOL-MYERS SQUIBB COMPANY-BMS-2017-013614

PATIENT
  Age: 92 Year
  Sex: Female
  Weight: 45 kg

DRUGS (1)
  1. ELIQUIS [Suspect]
     Active Substance: APIXABAN
     Indication: CEREBROVASCULAR ACCIDENT PROPHYLAXIS
     Dosage: 2.5 MG, BID
     Route: 048
     Dates: start: 20170123, end: 20170124

REACTIONS (3)
  - Gastric ulcer haemorrhage [Fatal]
  - Anaemia [Fatal]
  - Transfusion [Unknown]

NARRATIVE: CASE EVENT DATE: 20170124
